FAERS Safety Report 10051519 (Version 3)
Quarter: 2014Q2

REPORT INFORMATION
  Report Type: Spontaneous
  Country: GB (occurrence: GB)
  Receive Date: 20140401
  Receipt Date: 20140421
  Transmission Date: 20141212
  Serious: Yes (Other)
  Sender: FDA-Public Use
  Company Number: GB-ACTAVIS-2014-03615

PATIENT
  Age: 52 Year
  Sex: Male

DRUGS (3)
  1. CAPECITABINE (UNKNOWN) [Suspect]
     Indication: COLORECTAL CANCER METASTATIC
     Dosage: 1800 MG, BID (FOR 9 DAYS)
     Route: 048
     Dates: start: 20120329, end: 20130913
  2. OXALIPLATIN (UNKNOWN) [Suspect]
     Indication: COLORECTAL CANCER METASTATIC
     Dosage: 170 MG, ONCE IN 2 WEEKS
     Route: 042
     Dates: start: 20120329, end: 20130913
  3. AVASTIN                            /01555201/ [Suspect]
     Indication: COLORECTAL CANCER METASTATIC
     Dosage: 425 MG, ONCE IN 2 WEEKS
     Route: 042
     Dates: start: 20120329, end: 20130913

REACTIONS (1)
  - Pulmonary embolism [Recovered/Resolved]
